FAERS Safety Report 7680620-1 (Version None)
Quarter: 2011Q3

REPORT INFORMATION
  Report Type: 
  Country: None (occurrence: None)
  Receive Date: 20110812
  Receipt Date: 20100802
  Transmission Date: 20111222
  Serious: Yes (Death, Hospitalization, Other)
  Sender: FDA-Public Use
  Company Number: US-ROCHE-718791

PATIENT
  Age: 35 Year
  Sex: Male

DRUGS (2)
  1. INTERFERON ALFA [Suspect]
     Dosage: DOSE: 3 MILLION UNITS DAILY, DRUG REPORTED: INTERFERON ALFA
     Route: 065
  2. CONSENSUS INTERFERON [Concomitant]
     Dosage: ONGOING STATUS UNKNOWN AT THE TIME OF DEATH

REACTIONS (6)
  - PLEURAL EFFUSION [None]
  - HEPATITIS C [None]
  - PULMONARY HYPERTENSION [None]
  - RIGHT VENTRICULAR FAILURE [None]
  - FATIGUE [None]
  - CARDIAC FAILURE [None]
